FAERS Safety Report 9028461 (Version 1)
Quarter: 2013Q1

REPORT INFORMATION
  Report Type: Report from Study
  Country: AU (occurrence: AU)
  Receive Date: 20130124
  Receipt Date: 20130124
  Transmission Date: 20140127
  Serious: Yes (Other)
  Sender: FDA-Public Use
  Company Number: AU-JNJFOC-20121100812

PATIENT
  Age: 51 Year
  Sex: Male

DRUGS (4)
  1. STELARA [Suspect]
     Indication: PSORIASIS
     Route: 058
     Dates: start: 20130117
  2. STELARA [Suspect]
     Indication: PSORIASIS
     Dosage: 9 DOSES
     Route: 058
     Dates: start: 20101209
  3. AVAPRO [Concomitant]
  4. METHOTREXATE [Concomitant]

REACTIONS (2)
  - Arthritis [Recovering/Resolving]
  - Medication error [Unknown]
